FAERS Safety Report 25515668 (Version 2)
Quarter: 2025Q3

REPORT INFORMATION
  Report Type: Spontaneous
  Country: US (occurrence: US)
  Receive Date: 20250704
  Receipt Date: 20250711
  Transmission Date: 20251020
  Serious: Yes (Other)
  Sender: ROCHE
  Company Number: US-ROCHE-10000323089

PATIENT
  Age: 26 Year
  Sex: Female
  Weight: 58.97 kg

DRUGS (3)
  1. XOLAIR [Suspect]
     Active Substance: OMALIZUMAB
     Indication: Eosinophilic granulomatosis with polyangiitis
     Dosage: LATEST DOSE WAS ON 03-JUL-2025
     Route: 058
     Dates: start: 20250528
  2. XOLAIR [Suspect]
     Active Substance: OMALIZUMAB
     Indication: Food allergy
  3. RINVOQ [Concomitant]
     Active Substance: UPADACITINIB

REACTIONS (4)
  - Off label use [Unknown]
  - Swelling face [Recovered/Resolved]
  - Dyspnoea [Recovered/Resolved]
  - Anaphylactic reaction [Recovered/Resolved]

NARRATIVE: CASE EVENT DATE: 20250531
